APPROVED DRUG PRODUCT: LESSINA-28
Active Ingredient: ETHINYL ESTRADIOL; LEVONORGESTREL
Strength: 0.02MG;0.1MG
Dosage Form/Route: TABLET;ORAL-28
Application: A075803 | Product #002 | TE Code: AB2
Applicant: BARR LABORATORIES INC
Approved: Mar 20, 2002 | RLD: No | RS: No | Type: RX